FAERS Safety Report 5245047-0 (Version None)
Quarter: 2007Q1

REPORT INFORMATION
  Report Type: 
  Country: None (occurrence: None)
  Receive Date: 20070223
  Receipt Date: 20070213
  Transmission Date: 20070707
  Serious: Yes (Hospitalization)
  Sender: FDA-Public Use
  Company Number: PHEH2007US01996

PATIENT
  Sex: Female

DRUGS (3)
  1. LESCOL XL [Suspect]
     Indication: BLOOD CHOLESTEROL INCREASED
     Dosage: 40 MG, BID
     Dates: start: 20040101
  2. NIACIN [Suspect]
     Dates: start: 20060101
  3. PANTOPRAZOLE SODIUM [Suspect]
     Dates: start: 20061101, end: 20061120

REACTIONS (7)
  - DIZZINESS [None]
  - DRUG INTERACTION [None]
  - FALL [None]
  - MALAISE [None]
  - MUSCLE SPASMS [None]
  - ORTHOSTATIC HYPOTENSION [None]
  - UPPER LIMB FRACTURE [None]
